FAERS Safety Report 9532965 (Version 2)
Quarter: 2013Q3

REPORT INFORMATION
  Report Type: Report from Study
  Country: US (occurrence: US)
  Receive Date: 20130918
  Receipt Date: 20130918
  Transmission Date: 20140515
  Serious: Yes (Other)
  Sender: FDA-Public Use
  Company Number: US-US-EMD SERONO, INC.-7234824

PATIENT
  Age: 50 Year
  Sex: Female

DRUGS (1)
  1. REBIF [Suspect]
     Indication: PRODUCT USED FOR UNKNOWN INDICATION
     Route: 058
     Dates: start: 20080513

REACTIONS (8)
  - Large intestine polyp [Unknown]
  - Hypertension [Not Recovered/Not Resolved]
  - Hypoaesthesia [Not Recovered/Not Resolved]
  - Hypothyroidism [Unknown]
  - Influenza like illness [Recovered/Resolved]
  - Injection site pain [Unknown]
  - Injection site bruising [Recovering/Resolving]
  - Injection site haemorrhage [Unknown]
